FAERS Safety Report 5238849-8 (Version None)
Quarter: 2007Q1

REPORT INFORMATION
  Report Type: 
  Country: None (occurrence: None)
  Receive Date: 20070215
  Receipt Date: 20070205
  Transmission Date: 20070707
  Serious: Yes (Other)
  Sender: FDA-Public Use
  Company Number: US-PFIZER INC-2007009838

PATIENT
  Sex: Female
  Weight: 83.9 kg

DRUGS (7)
  1. LIPITOR [Suspect]
     Indication: MYOCARDIAL INFARCTION
     Dates: start: 20050205, end: 20061201
  2. LOVASTATIN [Suspect]
  3. COREG [Concomitant]
  4. HYZAAR [Concomitant]
  5. ALL OTHER THERAPEUTIC PRODUCTS [Concomitant]
  6. REMICADE [Concomitant]
  7. INSULIN [Concomitant]

REACTIONS (5)
  - CONVULSION [None]
  - HYPOAESTHESIA [None]
  - OEDEMA PERIPHERAL [None]
  - PAIN [None]
  - SWELLING FACE [None]
